FAERS Safety Report 9717467 (Version 2)
Quarter: 2015Q3

REPORT INFORMATION
  Report Type: Spontaneous
  Country: US (occurrence: US)
  Receive Date: 20131127
  Receipt Date: 20150803
  Transmission Date: 20151125
  Serious: No
  Sender: FDA-Public Use
  Company Number: US-GILEAD-2009-0019701

PATIENT
  Age: 59 Year
  Sex: Female
  Weight: 83.46 kg

DRUGS (10)
  1. LETAIRIS [Suspect]
     Active Substance: AMBRISENTAN
     Indication: PULMONARY ARTERIAL HYPERTENSION
     Route: 048
     Dates: start: 20081224
  2. DAILY MULTIVITAMIN [Concomitant]
     Active Substance: VITAMINS
  3. LASIX [Concomitant]
     Active Substance: FUROSEMIDE
  4. REVATIO [Concomitant]
     Active Substance: SILDENAFIL CITRATE
  5. PRAVASTATIN [Concomitant]
     Active Substance: PRAVASTATIN\PRAVASTATIN SODIUM
  6. CALTRATE 600 W/D [Concomitant]
  7. SINGULAIR CHEW [Concomitant]
  8. NASACORT AQ [Concomitant]
     Active Substance: TRIAMCINOLONE ACETONIDE
  9. PRILOSEC [Concomitant]
     Active Substance: OMEPRAZOLE MAGNESIUM
  10. ASPIRIN. [Concomitant]
     Active Substance: ASPIRIN

REACTIONS (3)
  - Flushing [Unknown]
  - Nasal congestion [Unknown]
  - Chills [Unknown]
